FAERS Safety Report 5955803-9 (Version None)
Quarter: 2008Q4

REPORT INFORMATION
  Report Type: 
  Country: None (occurrence: None)
  Receive Date: 20081117
  Receipt Date: 20081105
  Transmission Date: 20090506
  Serious: Yes (Hospitalization)
  Sender: FDA-Public Use
  Company Number: JP-PFIZER INC-2008089261

PATIENT
  Sex: Male
  Weight: 58 kg

DRUGS (12)
  1. SULPERAZON [Suspect]
     Indication: ENTEROCOLITIS BACTERIAL
     Route: 042
     Dates: start: 20080630, end: 20080707
  2. ESPO [Concomitant]
     Route: 042
     Dates: start: 20080529
  3. CYANOCOBALAMIN [Concomitant]
     Route: 042
     Dates: start: 20080611
  4. TANKARU [Concomitant]
     Route: 048
     Dates: start: 20060215
  5. MECOBALAMIN [Concomitant]
     Route: 048
     Dates: start: 20070924
  6. POLAPREZINC [Concomitant]
     Route: 048
     Dates: start: 20070425
  7. CILOSTAZOL [Concomitant]
     Route: 048
     Dates: start: 20060215
  8. RABEPRAZOLE SODIUM [Concomitant]
     Route: 048
     Dates: start: 20060830
  9. NORVASC [Concomitant]
     Route: 048
     Dates: start: 20060830
  10. MICARDIS [Concomitant]
     Route: 048
     Dates: start: 20060802
  11. BROTIZOLAM [Concomitant]
     Route: 048
     Dates: start: 20071219
  12. ALL OTHER THERAPEUTIC PRODUCTS [Concomitant]
     Dates: start: 19810313

REACTIONS (3)
  - ALCOHOL INTOLERANCE [None]
  - BLOOD PRESSURE DECREASED [None]
  - SHOCK [None]
